FAERS Safety Report 19426876 (Version 3)
Quarter: 2021Q3

REPORT INFORMATION
  Report Type: Spontaneous
  Country: US (occurrence: US)
  Receive Date: 20210616
  Receipt Date: 20210907
  Transmission Date: 20211014
  Serious: Yes (Hospitalization, Other)
  Sender: FDA-Public Use
  Company Number: US-INCYTE CORPORATION-2021IN005290

PATIENT

DRUGS (11)
  1. NAVITOCLAX [Suspect]
     Active Substance: NAVITOCLAX
     Dosage: 200 MILLIGRAM, QD (CYCLE: 21 DAYS)
     Route: 048
     Dates: start: 20210420, end: 20210525
  2. CALCIUM CARBONATE. [Concomitant]
     Active Substance: CALCIUM CARBONATE
     Indication: HYPERCHLORHYDRIA
     Dosage: 500 MG, AS REQUIRED
     Route: 048
     Dates: start: 20201209
  3. FISH OIL [Concomitant]
     Active Substance: FISH OIL
     Indication: SUPPLEMENTATION THERAPY
     Dosage: 1 DOSAGE FORM (TABLET), QD
     Route: 048
     Dates: start: 20200624
  4. VITAMIN C [Concomitant]
     Active Substance: ASCORBIC ACID
     Indication: SUPPLEMENTATION THERAPY
     Dosage: UNK UNK, QD
     Route: 048
     Dates: start: 20181209
  5. JAKAFI [Suspect]
     Active Substance: RUXOLITINIB
     Dosage: 20 MILLIGRAM, BID
     Route: 048
     Dates: start: 20210420, end: 20210525
  6. CALCIUM ACETATE. [Concomitant]
     Active Substance: CALCIUM ACETATE
     Indication: SUPPLEMENTATION THERAPY
     Dosage: 667 MILLIGRAM, QD
     Route: 048
     Dates: start: 20201209
  7. JAKAFI [Suspect]
     Active Substance: RUXOLITINIB
     Indication: MYELOFIBROSIS
     Dosage: UNK
     Route: 048
     Dates: start: 20200702
  8. NAVITOCLAX [Suspect]
     Active Substance: NAVITOCLAX
     Indication: MYELOFIBROSIS
     Dosage: 200 MILLIGRAM, QD (CYCLE: 21 DAYS)
     Route: 048
     Dates: start: 20210420, end: 20210511
  9. UBIQUINONE [Concomitant]
     Active Substance: DIETARY SUPPLEMENT\UBIDECARENONE
     Indication: SUPPLEMENTATION THERAPY
     Dosage: UNK UNK, QD
     Route: 048
     Dates: start: 20181204
  10. FERROUS SULFATE. [Concomitant]
     Active Substance: FERROUS SULFATE
     Indication: SUPPLEMENTATION THERAPY
     Dosage: 325 MILLIGRAM, QD
     Route: 048
     Dates: start: 20200624
  11. PENICILLIN V POTASSIUM. [Concomitant]
     Active Substance: PENICILLIN V POTASSIUM
     Indication: TOOTH INFECTION
     Dosage: 500 MILLIGRAM, Q6H
     Route: 048
     Dates: start: 20210525, end: 20210601

REACTIONS (7)
  - Chest X-ray abnormal [Unknown]
  - Febrile neutropenia [Not Recovered/Not Resolved]
  - Herpes simplex test positive [Unknown]
  - Thrombocytopenia [Unknown]
  - Clostridium test positive [Unknown]
  - Spinal osteoarthritis [Unknown]
  - Osteoarthritis [Unknown]

NARRATIVE: CASE EVENT DATE: 20210529
